FAERS Safety Report 23846390 (Version 2)
Quarter: 2024Q2

REPORT INFORMATION
  Report Type: Spontaneous
  Country: US (occurrence: US)
  Receive Date: 20240513
  Receipt Date: 20240625
  Transmission Date: 20240716
  Serious: Yes (Other)
  Sender: FDA-Public Use
  Company Number: US-ABBVIE-5753165

PATIENT
  Age: 21 Year
  Sex: Male

DRUGS (3)
  1. LEXAPRO [Suspect]
     Active Substance: ESCITALOPRAM OXALATE
     Indication: Product used for unknown indication
     Dosage: FORM STRENGTH-ESCITALOPRAM OXALATE 5MG TAB
     Route: 048
  2. DEMEROL [Suspect]
     Active Substance: MEPERIDINE HYDROCHLORIDE
     Indication: Gastrooesophageal reflux disease
     Route: 065
  3. LUMRYZ [Suspect]
     Active Substance: SODIUM OXYBATE
     Indication: Gastrooesophageal reflux disease
     Dosage: EXTENDED- RELEASE ORAL SUSPENSION?FORM STRENGTH: 7.5 MG (LUMRYZ 7.5 G (SODIUM OXYBATE))
     Route: 048
     Dates: start: 20240416

REACTIONS (6)
  - Loss of consciousness [Unknown]
  - Flatulence [Unknown]
  - Gastrooesophageal reflux disease [Recovered/Resolved]
  - Rash [Unknown]
  - Ulcer [Unknown]
  - Gastrooesophageal reflux disease [Unknown]

NARRATIVE: CASE EVENT DATE: 20240524
